FAERS Safety Report 18251003 (Version 3)
Quarter: 2020Q4

REPORT INFORMATION
  Report Type: Spontaneous
  Country: JP (occurrence: JP)
  Receive Date: 20200909
  Receipt Date: 20201203
  Transmission Date: 20210113
  Serious: Yes (Other)
  Sender: FDA-Public Use
  Company Number: JP-TAKEDA-2020TJP018736AA

PATIENT
  Age: 22 Year
  Sex: Male
  Weight: 60 kg

DRUGS (10)
  1. TRINTELLIX [Suspect]
     Active Substance: VORTIOXETINE HYDROBROMIDE
     Dosage: 10 MILLIGRAM, QD
     Route: 048
     Dates: start: 20200523, end: 20200605
  2. DEPAS [ETIZOLAM] [Suspect]
     Active Substance: ETIZOLAM
     Dosage: 3 MILLIGRAM
     Route: 048
     Dates: start: 20200111
  3. ZOPICLONE [Suspect]
     Active Substance: ZOPICLONE
     Indication: INSOMNIA
     Dosage: 7.5 MILLIGRAM, QD
     Route: 048
     Dates: start: 20191228
  4. REBAMIPIDE [Concomitant]
     Active Substance: REBAMIPIDE
     Indication: ABDOMINAL PAIN UPPER
     Dosage: 100 MILLIGRAM, TID
     Route: 048
     Dates: start: 20200111, end: 20200522
  5. TRINTELLIX [Suspect]
     Active Substance: VORTIOXETINE HYDROBROMIDE
     Dosage: 20 MILLIGRAM, QD
     Route: 048
     Dates: start: 20200111, end: 20200522
  6. ABILIFY [Concomitant]
     Active Substance: ARIPIPRAZOLE
     Indication: DEPRESSION
     Dosage: UNK
     Route: 048
     Dates: start: 20200125
  7. ABILIFY [Concomitant]
     Active Substance: ARIPIPRAZOLE
     Dosage: 3 MILLIGRAM, TID
     Route: 048
     Dates: start: 20200229, end: 20200327
  8. TRINTELLIX [Suspect]
     Active Substance: VORTIOXETINE HYDROBROMIDE
     Indication: DEPRESSION
     Dosage: 10 MILLIGRAM, QD
     Route: 048
     Dates: start: 20200107, end: 20200110
  9. DEPAS [ETIZOLAM] [Suspect]
     Active Substance: ETIZOLAM
     Indication: IRRITABILITY
     Dosage: UNK UNK, TID
     Route: 048
     Dates: start: 20200108
  10. LEVOTOMIN [LEVOMEPROMAZINE MALEATE] [Concomitant]
     Active Substance: LEVOMEPROMAZINE
     Indication: ANXIETY
     Dosage: 5 MILLIGRAM, TID
     Route: 048
     Dates: start: 20200125, end: 20200327

REACTIONS (3)
  - Epilepsy [Recovering/Resolving]
  - Intentional overdose [Unknown]
  - Headache [Unknown]

NARRATIVE: CASE EVENT DATE: 20200202
